FAERS Safety Report 7469990-7 (Version None)
Quarter: 2011Q2

REPORT INFORMATION
  Report Type: 
  Country: None (occurrence: None)
  Receive Date: 20110510
  Receipt Date: 20110502
  Transmission Date: 20111010
  Serious: Yes (Life-Threatening)
  Sender: FDA-Public Use
  Company Number: FR-ROCHE-775127

PATIENT
  Sex: Male

DRUGS (4)
  1. FLUOROURACIL [Concomitant]
  2. AVASTIN [Suspect]
     Indication: COLON CANCER
     Dosage: IN NOVEMBERER 2010, MAINTENANCE THEARPY WAS SATRTED
     Route: 042
     Dates: start: 20090301, end: 20110201
  3. LEUCOVORIN CALCIUM [Concomitant]
  4. IRINOTECAN HYDROCHLORIDE [Concomitant]

REACTIONS (2)
  - LARGE INTESTINE PERFORATION [None]
  - PNEUMOPERITONEUM [None]
